FAERS Safety Report 14939832 (Version 1)
Quarter: 2018Q2

REPORT INFORMATION
  Report Type: Spontaneous
  Country: JP (occurrence: JP)
  Receive Date: 20180525
  Receipt Date: 20180525
  Transmission Date: 20180711
  Serious: Yes (Hospitalization, Other)
  Sender: FDA-Public Use
  Company Number: JP-BAYER-2018-080906

PATIENT
  Age: 76 Year
  Sex: Male

DRUGS (2)
  1. NEXAVAR [Suspect]
     Active Substance: SORAFENIB
     Indication: HEPATOCELLULAR CARCINOMA
     Dosage: 2 DF, BID
     Route: 048
  2. NEXAVAR [Suspect]
     Active Substance: SORAFENIB
     Indication: HEPATOCELLULAR CARCINOMA
     Dosage: 1 DF, BID
     Route: 048

REACTIONS (11)
  - Bile duct obstruction [None]
  - Asthenia [None]
  - Chromaturia [None]
  - Constipation [None]
  - Diarrhoea [None]
  - Abdominal distension [None]
  - Faeces discoloured [None]
  - Melaena [None]
  - Jaundice [None]
  - Faeces hard [None]
  - Decreased appetite [None]
